FAERS Safety Report 6221060-1 (Version None)
Quarter: 2009Q2

REPORT INFORMATION
  Report Type: 
  Country: None (occurrence: None)
  Receive Date: 20090610
  Receipt Date: 20090609
  Transmission Date: 20091009
  Serious: Yes (Hospitalization)
  Sender: FDA-Public Use
  Company Number: A0789807A

PATIENT
  Age: 26 Year
  Sex: Female

DRUGS (5)
  1. PAXIL [Suspect]
     Indication: DRUG USE FOR UNKNOWN INDICATION
     Dosage: 10MG PER DAY
     Route: 048
     Dates: start: 20090331, end: 20090331
  2. LOW-OGESTREL-21 [Suspect]
     Indication: ORAL CONTRACEPTION
     Dosage: 1TAB PER DAY
     Route: 048
     Dates: start: 20090101, end: 20090415
  3. ETHINYLESTRADIOL+NORGESTREL [Suspect]
     Indication: ORAL CONTRACEPTION
     Dosage: 1TAB PER DAY
     Route: 048
     Dates: start: 20090416, end: 20090420
  4. SEROQUEL [Suspect]
     Indication: ANXIETY
     Dosage: 25MG SINGLE DOSE
     Route: 048
     Dates: start: 20090201, end: 20090201
  5. EFFEXOR XR [Suspect]
     Indication: ANXIETY
     Dosage: 150MG SINGLE DOSE
     Route: 048
     Dates: start: 20090201, end: 20090201

REACTIONS (13)
  - ANGER [None]
  - ANXIETY [None]
  - DEPRESSION [None]
  - FATIGUE [None]
  - FEELING ABNORMAL [None]
  - HEADACHE [None]
  - HYPERHIDROSIS [None]
  - NAUSEA [None]
  - PARANOIA [None]
  - POSTPARTUM DEPRESSION [None]
  - SENSORY DISTURBANCE [None]
  - SOMNOLENCE [None]
  - SUICIDAL IDEATION [None]
